FAERS Safety Report 10335904 (Version 1)
Quarter: 2014Q3

REPORT INFORMATION
  Report Type: Spontaneous
  Country: US (occurrence: US)
  Receive Date: 20140723
  Receipt Date: 20140723
  Transmission Date: 20150326
  Serious: Yes (Hospitalization)
  Sender: FDA-Public Use
  Company Number: US-BRISTOL-MYERS SQUIBB COMPANY-19215276

PATIENT
  Sex: Female

DRUGS (2)
  1. COUMADIN [Suspect]
     Active Substance: WARFARIN SODIUM
  2. WARFARIN [Suspect]
     Active Substance: WARFARIN
     Dates: start: 201308

REACTIONS (5)
  - Tongue discolouration [Unknown]
  - Hospitalisation [Unknown]
  - Tongue haemorrhage [Unknown]
  - International normalised ratio increased [Unknown]
  - Drug dispensing error [Unknown]
